FAERS Safety Report 19170746 (Version 2)
Quarter: 2021Q2

REPORT INFORMATION
  Report Type: Spontaneous
  Country: AU (occurrence: AU)
  Receive Date: 20210422
  Receipt Date: 20210426
  Transmission Date: 20210717
  Serious: Yes (Hospitalization, Other)
  Sender: FDA-Public Use
  Company Number: AU-009507513-2104AUS005668

PATIENT
  Age: 87 Year
  Sex: Male

DRUGS (1)
  1. KEYTRUDA [Suspect]
     Active Substance: PEMBROLIZUMAB
     Dosage: UNK
     Dates: start: 201810, end: 202001

REACTIONS (21)
  - Sepsis [Unknown]
  - Escherichia infection [Unknown]
  - Hyperglycaemia [Unknown]
  - Pyrexia [Unknown]
  - Depression [Unknown]
  - Nausea [Recovered/Resolved]
  - Gallbladder disorder [Unknown]
  - Gastric disorder [Unknown]
  - Physical deconditioning [Unknown]
  - Drug intolerance [Unknown]
  - Pyrexia [Unknown]
  - Abdominal tenderness [Unknown]
  - Fatigue [Recovered/Resolved]
  - Cholecystitis [Unknown]
  - Delirium [Unknown]
  - Hypotension [Unknown]
  - Pruritus [Unknown]
  - Escherichia bacteraemia [Unknown]
  - Liver abscess [Unknown]
  - Weight fluctuation [Unknown]
  - Decreased appetite [Recovered/Resolved]

NARRATIVE: CASE EVENT DATE: 201811
